FAERS Safety Report 8050028-8 (Version None)
Quarter: 2012Q1

REPORT INFORMATION
  Report Type: 
  Country: None (occurrence: None)
  Receive Date: 20120117
  Receipt Date: 20120109
  Transmission Date: 20120608
  Serious: Yes (Hospitalization)
  Sender: FDA-Public Use
  Company Number: US-JNJFOC-20110706801

PATIENT
  Sex: Male
  Weight: 42.3 kg

DRUGS (8)
  1. MESALAMINE [Suspect]
     Dates: end: 20110709
  2. METRONIDAZOLE [Concomitant]
     Dates: start: 20110727
  3. MESALAMINE [Suspect]
     Indication: PRODUCT USED FOR UNKNOWN INDICATION
     Dates: start: 20110725, end: 20110701
  4. MERCAPTOPURINE [Suspect]
     Indication: PRODUCT USED FOR UNKNOWN INDICATION
  5. PROBIOTICS [Concomitant]
  6. REMICADE [Suspect]
     Indication: COLITIS ULCERATIVE
     Route: 042
     Dates: start: 20110702
  7. REMICADE [Suspect]
     Route: 042
     Dates: start: 20110411
  8. PREDNISONE [Concomitant]

REACTIONS (1)
  - PANCREATITIS [None]
